FAERS Safety Report 16033103 (Version 1)
Quarter: 2019Q1

REPORT INFORMATION
  Report Type: Spontaneous
  Country: US (occurrence: US)
  Receive Date: 20190305
  Receipt Date: 20190305
  Transmission Date: 20190418
  Serious: No
  Sender: FDA-Public Use
  Company Number: US-IMPAX LABORATORIES, LLC-2018-IPXL-02342

PATIENT
  Age: 81 Year
  Sex: Male

DRUGS (3)
  1. CARBIDOPA-LEVODOPA ER [Suspect]
     Active Substance: CARBIDOPA\LEVODOPA
     Indication: PARKINSON^S DISEASE
     Dosage: UNK
     Route: 065
  2. RYTARY [Suspect]
     Active Substance: CARBIDOPA\LEVODOPA
     Indication: PARKINSON^S DISEASE
     Dosage: 36.25/145 MG, 13 CAPSULES, DAILY
     Route: 048
  3. RYTARY [Suspect]
     Active Substance: CARBIDOPA\LEVODOPA
     Dosage: 36.25/145 MG, 4 CAPSULES, EVERY 4 HOURS, FOUR TIMES DAILY
     Route: 048

REACTIONS (11)
  - Muscular weakness [Not Recovered/Not Resolved]
  - Nausea [Unknown]
  - On and off phenomenon [Unknown]
  - Hypophagia [Unknown]
  - Asthenia [Not Recovered/Not Resolved]
  - Hypokinesia [Not Recovered/Not Resolved]
  - Weight decreased [Unknown]
  - Therapy cessation [Unknown]
  - Head titubation [Unknown]
  - Retching [Unknown]
  - Dysstasia [Unknown]

NARRATIVE: CASE EVENT DATE: 20180702
